FAERS Safety Report 17752140 (Version 3)
Quarter: 2020Q2

REPORT INFORMATION
  Report Type: Spontaneous
  Country: US (occurrence: US)
  Receive Date: 20200506
  Receipt Date: 20200515
  Transmission Date: 20200714
  Serious: Yes (Other)
  Sender: FDA-Public Use
  Company Number: US-PFIZER INC-2020179294

PATIENT
  Age: 72 Year
  Sex: Female
  Weight: 48.99 kg

DRUGS (1)
  1. XELJANZ XR [Suspect]
     Active Substance: TOFACITINIB CITRATE
     Indication: RHEUMATOID ARTHRITIS
     Dosage: 11 MG, 1X/DAY
     Route: 048

REACTIONS (7)
  - Peripheral swelling [Unknown]
  - Pain in extremity [Unknown]
  - Hand deformity [Unknown]
  - Loss of personal independence in daily activities [Unknown]
  - Erythema [Unknown]
  - Drug dependence [Unknown]
  - Product dose omission [Unknown]
